FAERS Safety Report 13698475 (Version 1)
Quarter: 2017Q2

REPORT INFORMATION
  Report Type: Spontaneous
  Country: US (occurrence: US)
  Receive Date: 20170628
  Receipt Date: 20170628
  Transmission Date: 20170830
  Serious: Yes (Other)
  Sender: FDA-Public Use
  Company Number: US-BAUSCH-BL-2017-019988

PATIENT
  Age: 65 Year
  Sex: Female

DRUGS (2)
  1. PYRIDOSTIGMINE [Suspect]
     Active Substance: PYRIDOSTIGMINE
     Indication: MYASTHENIA GRAVIS
     Route: 048
  2. PYRIDOSTIGMINE [Suspect]
     Active Substance: PYRIDOSTIGMINE
     Route: 048

REACTIONS (2)
  - Cardiac arrest [Recovered/Resolved]
  - Bradycardia [Recovered/Resolved]
